FAERS Safety Report 14963204 (Version 1)
Quarter: 2018Q3

REPORT INFORMATION
  Report Type: Spontaneous
  Country: US (occurrence: US)
  Receive Date: 20180601
  Receipt Date: 20180601
  Transmission Date: 20181010
  Serious: No
  Sender: FDA-Public Use
  Company Number: US-GLAXOSMITHKLINE-US2018GSK092133

PATIENT
  Sex: Female

DRUGS (3)
  1. HABITROL PATCH NICOTINE TRANSDERMAL SYSTEM, STEP 1 [Suspect]
     Active Substance: NICOTINE
     Indication: PRODUCT USED FOR UNKNOWN INDICATION
     Dosage: 21 MG, UNK
  2. HABITROL PATCH NICOTINE TRANSDERMAL SYSTEM, STEP 2 [Suspect]
     Active Substance: NICOTINE
     Indication: PRODUCT USED FOR UNKNOWN INDICATION
     Dosage: 14 MG, UNK
  3. HABITROL PATCH NICOTINE TRANSDERMAL SYSTEM, STEP 3 [Suspect]
     Active Substance: NICOTINE
     Indication: PRODUCT USED FOR UNKNOWN INDICATION
     Dosage: 7 MG, UNK

REACTIONS (3)
  - Application site papules [Unknown]
  - Application site erythema [Unknown]
  - Application site reaction [Unknown]
